FAERS Safety Report 10088045 (Version 3)
Quarter: 2014Q2

REPORT INFORMATION
  Report Type: Spontaneous
  Country: US (occurrence: US)
  Receive Date: 20140420
  Receipt Date: 20140519
  Transmission Date: 20141212
  Serious: No
  Sender: FDA-Public Use
  Company Number: US-BRISTOL-MYERS SQUIBB COMPANY-20616520

PATIENT
  Age: 72 Year
  Sex: Female
  Weight: 82.99 kg

DRUGS (4)
  1. BYDUREON [Suspect]
     Indication: TYPE 2 DIABETES MELLITUS
     Route: 058
     Dates: start: 2014
  2. VICTOZA [Concomitant]
  3. ASPIRIN [Concomitant]
  4. GLIPIZIDE [Concomitant]

REACTIONS (6)
  - Diarrhoea [Recovered/Resolved]
  - Drug dose omission [Unknown]
  - Injection site pain [Unknown]
  - Headache [Recovered/Resolved]
  - Injection site nodule [Not Recovered/Not Resolved]
  - Drug administration error [Unknown]
